FAERS Safety Report 6275000-X (Version None)
Quarter: 2009Q3

REPORT INFORMATION
  Report Type: 
  Country: None (occurrence: None)
  Receive Date: 20090717
  Receipt Date: 20090703
  Transmission Date: 20100115
  Serious: Yes (Hospitalization)
  Sender: FDA-Public Use
  Company Number: 8046455

PATIENT
  Age: 48 Year
  Sex: Female

DRUGS (7)
  1. KEPPRA [Suspect]
     Indication: PARTIAL SEIZURES
     Dosage: 2000 MG 2/D PO
     Route: 048
     Dates: start: 20090201, end: 20090401
  2. KEPPRA [Suspect]
     Indication: STATUS EPILEPTICUS
     Dosage: 2000 MG 2/D PO
     Route: 048
     Dates: start: 20090201, end: 20090401
  3. KEPPRA [Suspect]
     Indication: PARTIAL SEIZURES
     Dosage: 1500 MG 2/D PO
     Route: 048
     Dates: start: 20090401
  4. TEGRETOL [Concomitant]
     Indication: STATUS EPILEPTICUS
  5. LAMOTRIGINE [Concomitant]
  6. VIMPAT [Concomitant]
  7. . [Concomitant]

REACTIONS (3)
  - DIZZINESS [None]
  - HEADACHE [None]
  - NAUSEA [None]
